FAERS Safety Report 9650682 (Version 3)
Quarter: 2013Q4

REPORT INFORMATION
  Report Type: Spontaneous
  Country: US (occurrence: US)
  Receive Date: 20131029
  Receipt Date: 20131227
  Transmission Date: 20140711
  Serious: Yes (Hospitalization)
  Sender: FDA-Public Use
  Company Number: US-PFIZER INC-2013165420

PATIENT
  Age: 78 Year
  Sex: Female

DRUGS (6)
  1. LYRICA [Suspect]
     Indication: FIBROMYALGIA
     Dosage: 50 MG, 4X/DAY (1 CAPS QID 30 DAYS)
     Route: 048
  2. TRAMADOL HYDROCHLORIDE [Concomitant]
     Dosage: 100 MG, 3X/DAY
  3. BENAZEPRIL [Concomitant]
     Dosage: 20 MG, 1X/DAY (DAILY AM)
  4. LEVOTHYROXINE [Concomitant]
     Dosage: 50 UG, 1X/DAY (1 TAB DAILY IN AM WITH LIQUIDS)
  5. PRAVASTATIN SODIUM [Concomitant]
     Dosage: 40 MG, 1X/DAY (TAKE 1 AT PM)
  6. HALCION [Concomitant]
     Indication: SLEEP DISORDER
     Dosage: 0.25 MG, (AT BEDTIME AND IF NEEDED TAKE 1 TAB AT 3:00 AM)

REACTIONS (7)
  - Pain [Unknown]
  - Intervertebral disc degeneration [Unknown]
  - Vomiting [Recovered/Resolved]
  - Diarrhoea [Recovered/Resolved]
  - Dyspepsia [Recovered/Resolved]
  - Decreased appetite [Unknown]
  - Weight decreased [Unknown]
